FAERS Safety Report 4930385-9 (Version None)
Quarter: 2006Q1

REPORT INFORMATION
  Report Type: 
  Country: None (occurrence: None)
  Receive Date: 20060302
  Receipt Date: 20051011
  Transmission Date: 20060701
  Serious: Yes (Hospitalization)
  Sender: FDA-Public Use
  Company Number: US-NOVOPROD-247684

PATIENT
  Age: 60 Year
  Sex: Female
  Weight: 98 kg

DRUGS (5)
  1. HUMALOG [Suspect]
     Indication: INSULIN-REQUIRING TYPE II DIABETES MELLITUS
     Dosage: 20 - 50 UNITS, QD
     Route: 058
     Dates: start: 20050801, end: 20051001
  2. NOVOLOG MIX 70/30 [Suspect]
     Indication: INSULIN-REQUIRING TYPE II DIABETES MELLITUS
     Dosage: SLIDING SCALE, BID OR TID
     Route: 058
  3. LANTUS [Concomitant]
     Indication: INSULIN-REQUIRING TYPE II DIABETES MELLITUS
     Dosage: 18 IU, QD
     Route: 058
     Dates: start: 20050922
  4. ACTOS [Concomitant]
     Indication: INSULIN-REQUIRING TYPE II DIABETES MELLITUS
  5. CRESTOR [Concomitant]
     Indication: CORONARY ARTERY DISEASE

REACTIONS (4)
  - BLOOD GLUCOSE INCREASED [None]
  - CHEST PAIN [None]
  - GLYCOSYLATED HAEMOGLOBIN INCREASED [None]
  - PANIC REACTION [None]
